FAERS Safety Report 6016391-4 (Version None)
Quarter: 2008Q4

REPORT INFORMATION
  Report Type: 
  Country: None (occurrence: None)
  Receive Date: 20081222
  Receipt Date: 20081218
  Transmission Date: 20090506
  Serious: Yes (Death)
  Sender: FDA-Public Use
  Company Number: US-JNJFOC-20081205041

PATIENT
  Age: 84 Year
  Sex: Male
  Weight: 78 kg

DRUGS (15)
  1. RISPERIDONE [Suspect]
     Route: 048
  2. RISPERIDONE [Suspect]
     Indication: DEMENTIA ALZHEIMER'S TYPE
     Route: 048
  3. CIPRO [Concomitant]
  4. CITALOPRAM HYDROBROMIDE [Concomitant]
  5. DONEPEZIL HCL [Concomitant]
  6. FUROSEMIDE [Concomitant]
  7. LISINOPRIL [Concomitant]
  8. PENTOXIFYLLINE [Concomitant]
  9. SIMVASTATIN [Concomitant]
  10. TERBINAFINE HCL [Concomitant]
  11. TRAZODONE [Concomitant]
  12. AEROBID [Concomitant]
  13. ASPIRIN [Concomitant]
  14. HYDROCODONE W/ACETAMINOOPHEN [Concomitant]
  15. POTASSIUM CHLORIDE [Concomitant]

REACTIONS (4)
  - ANAEMIA [None]
  - CARDIAC FAILURE CONGESTIVE [None]
  - CORONARY ARTERY DISEASE [None]
  - PERIPHERAL VASCULAR DISORDER [None]
